FAERS Safety Report 5819688-3 (Version None)
Quarter: 2008Q3

REPORT INFORMATION
  Report Type: 
  Country: None (occurrence: None)
  Receive Date: 20080723
  Receipt Date: 20080711
  Transmission Date: 20090109
  Serious: Yes (Other)
  Sender: FDA-Public Use
  Company Number: US-PFIZER INC-2008045189

PATIENT
  Sex: Male
  Weight: 70.3 kg

DRUGS (6)
  1. ZYVOX [Suspect]
     Indication: LOCALISED INFECTION
     Route: 048
     Dates: start: 20080516, end: 20080523
  2. GLUCOVANCE [Concomitant]
     Indication: DIABETES MELLITUS
  3. HYZAAR [Concomitant]
     Indication: HYPERTENSION
  4. LIPITOR [Concomitant]
     Indication: BLOOD CHOLESTEROL INCREASED
  5. COSOPT [Concomitant]
  6. XALATAN [Concomitant]
     Indication: GLAUCOMA

REACTIONS (7)
  - BACK PAIN [None]
  - BLOOD PRESSURE INCREASED [None]
  - BODY TEMPERATURE INCREASED [None]
  - CHILLS [None]
  - HYPOTENSION [None]
  - OROPHARYNGEAL PAIN [None]
  - PHARYNGITIS [None]
